FAERS Safety Report 12120667 (Version 3)
Quarter: 2016Q1

REPORT INFORMATION
  Report Type: Spontaneous
  Country: VN (occurrence: VN)
  Receive Date: 20160226
  Receipt Date: 20160311
  Transmission Date: 20160526
  Serious: Yes (Death, Other)
  Sender: FDA-Public Use
  Company Number: VN-B.I. PHARMACEUTICALS,INC./RIDGEFIELD-2016-BI-11927VN

PATIENT
  Age: 28 Year
  Sex: Male

DRUGS (1)
  1. MOBIC [Suspect]
     Active Substance: MELOXICAM
     Indication: PAIN MANAGEMENT
     Dosage: 15 MG
     Route: 030
     Dates: start: 20160118, end: 20160118

REACTIONS (9)
  - Cardiac arrest [Unknown]
  - Respiratory arrest [Unknown]
  - Seizure [Unknown]
  - Bradycardia [Unknown]
  - Brain injury [Fatal]
  - Clonus [Unknown]
  - Hypotension [Unknown]
  - Renal failure [Unknown]
  - Coma [Unknown]

NARRATIVE: CASE EVENT DATE: 20160119
